FAERS Safety Report 12208063 (Version 2)
Quarter: 2016Q2

REPORT INFORMATION
  Report Type: Spontaneous
  Country: US (occurrence: US)
  Receive Date: 20160324
  Receipt Date: 20160422
  Transmission Date: 20160815
  Serious: Yes (Other)
  Sender: FDA-Public Use
  Company Number: US-PURDUE-USA-2016-0129819

PATIENT
  Age: 14 Year
  Sex: Male

DRUGS (1)
  1. OXYCODONE HCL CR TABLETS (SIMILAR TO NDA 22-272) [Suspect]
     Active Substance: OXYCODONE HYDROCHLORIDE
     Indication: DRUG ABUSE
     Route: 048

REACTIONS (2)
  - Drug dependence [Unknown]
  - Drug abuse [Unknown]
